FAERS Safety Report 5391149-8 (Version None)
Quarter: 2007Q3

REPORT INFORMATION
  Report Type: 
  Country: None (occurrence: None)
  Receive Date: 20070719
  Receipt Date: 20070709
  Transmission Date: 20080115
  Serious: Yes (Hospitalization, Other)
  Sender: FDA-Public Use
  Company Number: JP-JNJFOC-20050800184

PATIENT
  Sex: Female
  Weight: 57 kg

DRUGS (28)
  1. REMICADE [Suspect]
     Route: 042
  2. REMICADE [Suspect]
     Route: 042
  3. REMICADE [Suspect]
     Route: 042
  4. REMICADE [Suspect]
     Route: 042
  5. REMICADE [Suspect]
     Route: 042
  6. REMICADE [Suspect]
     Route: 042
  7. REMICADE [Suspect]
     Route: 042
  8. REMICADE [Suspect]
     Route: 042
  9. REMICADE [Suspect]
     Route: 042
  10. REMICADE [Suspect]
     Dosage: 6 INFUSIONS, DATES UNSPECIFIED
     Route: 042
  11. REMICADE [Suspect]
     Route: 042
  12. REMICADE [Suspect]
     Route: 042
  13. REMICADE [Suspect]
     Route: 042
  14. REMICADE [Suspect]
     Route: 042
  15. REMICADE [Suspect]
     Route: 042
  16. REMICADE [Suspect]
     Indication: RHEUMATOID ARTHRITIS
     Route: 042
  17. PREDNISOLONE [Suspect]
     Indication: RHEUMATOID ARTHRITIS
     Route: 048
  18. METHOTREXATE [Suspect]
     Route: 048
     Dates: start: 20030101, end: 20050627
  19. METHOTREXATE [Suspect]
     Route: 048
     Dates: start: 20030101, end: 20050627
  20. METHOTREXATE [Suspect]
     Indication: RHEUMATOID ARTHRITIS
     Route: 048
     Dates: start: 20030101, end: 20050627
  21. BACTRIM [Suspect]
     Indication: PNEUMONIA
  22. BENAMBAX [Suspect]
     Indication: PNEUMONIA
  23. GASTER D [Concomitant]
     Indication: PROPHYLAXIS AGAINST GASTROINTESTINAL ULCER
     Route: 048
  24. VOLTAREN [Concomitant]
     Indication: ARTHRALGIA
     Route: 048
  25. CYTOTEC [Concomitant]
     Indication: PROPHYLAXIS
     Dosage: DOSE=RG
     Route: 048
  26. FOSAMAC [Concomitant]
     Indication: PROPHYLAXIS
     Route: 048
  27. DEPAS [Concomitant]
     Indication: INSOMNIA
     Route: 048
     Dates: start: 20030829, end: 20050627
  28. DIAPHENYLSULFONE [Concomitant]
     Route: 048

REACTIONS (6)
  - DRUG ERUPTION [None]
  - JOINT ARTHROPLASTY [None]
  - MYALGIA [None]
  - NASOPHARYNGITIS [None]
  - PLATELET COUNT DECREASED [None]
  - PNEUMOCYSTIS JIROVECI PNEUMONIA [None]
